FAERS Safety Report 5790217-6 (Version None)
Quarter: 2008Q2

REPORT INFORMATION
  Report Type: 
  Country: None (occurrence: None)
  Receive Date: 20080626
  Receipt Date: 20080502
  Transmission Date: 20081010
  Serious: No
  Sender: FDA-Public Use
  Company Number: A0705446A

PATIENT

DRUGS (1)
  1. ALLI [Suspect]
     Dates: start: 20080101

REACTIONS (7)
  - DRUG INEFFECTIVE [None]
  - FEAR [None]
  - GASTROINTESTINAL DISORDER [None]
  - HUNGER [None]
  - RECTAL DISCHARGE [None]
  - THERAPEUTIC RESPONSE UNEXPECTED [None]
  - WEIGHT FLUCTUATION [None]
